FAERS Safety Report 8316981-X (Version None)
Quarter: 2012Q2

REPORT INFORMATION
  Report Type: 
  Country: None (occurrence: None)
  Receive Date: 20120427
  Receipt Date: 20120419
  Transmission Date: 20120825
  Serious: Yes (Hospitalization)
  Sender: FDA-Public Use
  Company Number: US-BAYER-2011-099768

PATIENT
  Age: 27 Year
  Sex: Female
  Weight: 76.644 kg

DRUGS (14)
  1. CEPHALEXIN [Concomitant]
     Dosage: 500 MG, UNK
     Dates: start: 20081031, end: 20081104
  2. DROSPIRENONE AND ETHINYL ESTRADIOL [Suspect]
     Indication: DYSMENORRHOEA
     Dosage: UNK
     Dates: start: 20080831, end: 20080929
  3. BENTYL [Concomitant]
     Dosage: 10 MG, UNK
     Route: 048
  4. VENTOLIN [Concomitant]
     Dosage: 900 UNK, UNK
     Dates: start: 20081031, end: 20081125
  5. YASMIN [Suspect]
     Dosage: UNK
     Dates: start: 20080929, end: 20081111
  6. XANAX [Concomitant]
     Dosage: 0.25 MG, TID
     Dates: start: 20070101
  7. CALCIUM [Concomitant]
  8. TYLENOL (CAPLET) [Concomitant]
     Indication: PAIN
     Dosage: UNK UNK, PRN
  9. YASMIN [Suspect]
     Indication: DYSMENORRHOEA
     Dosage: UNK
     Dates: start: 20060731, end: 20080830
  10. SYMBICORT [Concomitant]
     Dosage: UNK
     Dates: start: 20081001
  11. IBUPROFEN [Concomitant]
     Dosage: 800 MG, UNK
     Dates: start: 20081014, end: 20081029
  12. ZOLOFT [Concomitant]
     Indication: ANXIETY
     Dosage: 50 MG, UNK
     Dates: start: 20081021, end: 20081109
  13. CALCIUM CARBONATE [Concomitant]
  14. DICYCLOMINE [Concomitant]
     Dosage: 10 MG, UNK
     Dates: start: 20081014

REACTIONS (11)
  - VEIN DISORDER [None]
  - MYALGIA [None]
  - EMOTIONAL DISTRESS [None]
  - PAIN [None]
  - MUSCLE SPASMS [None]
  - ANXIETY [None]
  - DEEP VEIN THROMBOSIS [None]
  - OEDEMA PERIPHERAL [None]
  - NAUSEA [None]
  - PAIN IN EXTREMITY [None]
  - INJURY [None]
